FAERS Safety Report 5628632-3 (Version None)
Quarter: 2008Q1

REPORT INFORMATION
  Report Type: 
  Country: None (occurrence: None)
  Receive Date: 20080215
  Receipt Date: 20080205
  Transmission Date: 20080703
  Serious: Yes (Other)
  Sender: FDA-Public Use
  Company Number: DE-PFIZER INC-2008011732

PATIENT
  Age: 53 Year
  Sex: Male

DRUGS (3)
  1. SORTIS [Suspect]
     Route: 048
  2. MOLSIDOMINE [Concomitant]
  3. METOHEXAL [Concomitant]

REACTIONS (1)
  - LARGE INTESTINAL HAEMORRHAGE [None]
